FAERS Safety Report 12262547 (Version 1)
Quarter: 2016Q2

REPORT INFORMATION
  Report Type: Report from Study
  Country: US (occurrence: US)
  Receive Date: 20160413
  Receipt Date: 20160413
  Transmission Date: 20160815
  Serious: No
  Sender: FDA-Public Use
  Company Number: US-AMGEN-USASL2016045069

PATIENT
  Age: 75 Year
  Sex: Female

DRUGS (1)
  1. ENBREL [Suspect]
     Active Substance: ETANERCEPT
     Indication: PSORIASIS
     Dosage: UNK , 2 TIMES/WK
     Route: 065
     Dates: start: 20160229

REACTIONS (1)
  - Benign tumour excision [Unknown]

NARRATIVE: CASE EVENT DATE: 20160406
